FAERS Safety Report 5212364-X (Version None)
Quarter: 2006Q4

REPORT INFORMATION
  Report Type: 
  Country: None (occurrence: None)
  Receive Date: 20061130
  Receipt Date: 20060828
  Transmission Date: 20070319
  Serious: Yes (Other)
  Sender: FDA-Public Use
  Company Number: WAES 0608USA06578

PATIENT
  Age: 71 Year
  Sex: Female
  Weight: 55.3388 kg

DRUGS (2)
  1. FOSAMAX [Suspect]
     Indication: OSTEOPOROSIS
     Dosage: 70 MG/WKY/PO
     Route: 048
     Dates: start: 20020601, end: 20060601
  2. LOTENSIN [Concomitant]

REACTIONS (1)
  - OSTEONECROSIS [None]
